FAERS Safety Report 5958447-8 (Version None)
Quarter: 2008Q4

REPORT INFORMATION
  Report Type: 
  Country: None (occurrence: None)
  Receive Date: 20081119
  Receipt Date: 20081110
  Transmission Date: 20090506
  Serious: Yes (Other)
  Sender: FDA-Public Use
  Company Number: IT-TEVA-180555ISR

PATIENT
  Age: 47 Year
  Sex: Female

DRUGS (12)
  1. VINCRISTINE [Suspect]
     Indication: EPSTEIN-BARR VIRUS ASSOCIATED LYMPHOPROLIFERATIVE DISORDER
  2. BLEOMYCIN SULFATE [Suspect]
     Indication: EPSTEIN-BARR VIRUS ASSOCIATED LYMPHOPROLIFERATIVE DISORDER
     Dosage: 10 U/M2
  3. ETOPOSIDE [Suspect]
     Indication: EPSTEIN-BARR VIRUS ASSOCIATED LYMPHOPROLIFERATIVE DISORDER
     Route: 042
  4. DOXORUBICIN HCL [Suspect]
     Indication: EPSTEIN-BARR VIRUS ASSOCIATED LYMPHOPROLIFERATIVE DISORDER
  5. ETOPOSIDE [Suspect]
     Route: 048
  6. CYCLOPHOSPHAMIDE [Suspect]
     Indication: EPSTEIN-BARR VIRUS ASSOCIATED LYMPHOPROLIFERATIVE DISORDER
  7. PREDNISONE [Suspect]
     Indication: EPSTEIN-BARR VIRUS ASSOCIATED LYMPHOPROLIFERATIVE DISORDER
     Route: 048
  8. BACTRIM [Concomitant]
  9. FLUCONAZOLE [Concomitant]
  10. RANITIDINE HYDROCHLORIDE [Concomitant]
  11. ACYCLOVIR [Concomitant]
  12. VALACYCLOVIR HCL [Concomitant]

REACTIONS (1)
  - MUCOSAL INFLAMMATION [None]
